FAERS Safety Report 8313273-X (Version None)
Quarter: 2012Q2

REPORT INFORMATION
  Report Type: 
  Country: None (occurrence: None)
  Receive Date: 20120426
  Receipt Date: 20120418
  Transmission Date: 20120825
  Serious: Yes (Hospitalization, Other)
  Sender: FDA-Public Use
  Company Number: US-US-EMD SERONO, INC.-7030041

PATIENT
  Sex: Female
  Weight: 82 kg

DRUGS (26)
  1. REBIF [Suspect]
     Route: 058
     Dates: start: 20110401
  2. REGLAN [Concomitant]
     Indication: PRODUCT USED FOR UNKNOWN INDICATION
  3. UNSPECIFIED MEDICATION FOR DRY MOUTH [Concomitant]
     Indication: DRY MOUTH
  4. SYNTHROID [Concomitant]
     Indication: THYROID DISORDER
  5. REBIF [Suspect]
     Indication: MULTIPLE SCLEROSIS
     Route: 058
     Dates: start: 19990101, end: 20100601
  6. MIRAPEX [Concomitant]
     Indication: RESTLESS LEGS SYNDROME
  7. PERCOCET [Concomitant]
     Indication: PAIN
     Dosage: 10-650 MG
  8. BENTYL [Concomitant]
     Indication: FUNCTIONAL GASTROINTESTINAL DISORDER
  9. CELEBREX [Concomitant]
     Indication: PRODUCT USED FOR UNKNOWN INDICATION
  10. AMBIEN [Concomitant]
     Indication: SLEEP DISORDER
  11. VITAMIN B-12 [Concomitant]
     Indication: SUPPLEMENTATION THERAPY
  12. TOPAMAX [Concomitant]
     Indication: LOSS OF CONSCIOUSNESS
  13. REBIF [Suspect]
     Route: 058
     Dates: start: 20101019, end: 20110301
  14. TETANUS AND WHOOPING COUGH IMMUNIZATION [Concomitant]
     Dates: start: 20100901, end: 20100901
  15. DILAUDID [Concomitant]
     Indication: PAIN
  16. BACLOFEN [Concomitant]
     Indication: PRODUCT USED FOR UNKNOWN INDICATION
  17. ZOCOR [Concomitant]
     Indication: BLOOD CHOLESTEROL INCREASED
  18. DITROPAN [Concomitant]
     Indication: BLADDER DYSFUNCTION
  19. TOPAMAX [Concomitant]
     Indication: BALANCE DISORDER
  20. METHOTREXATE [Concomitant]
  21. DURAGESIC-100 [Concomitant]
     Indication: PAIN
  22. ELAVIL [Concomitant]
     Indication: DEPRESSION
  23. ELAVIL [Concomitant]
     Indication: ANXIETY
     Dosage: AT BEDTIME
  24. BUSPAR [Concomitant]
     Indication: NEURALGIA
  25. BUSPAR [Concomitant]
     Indication: DEPRESSION
  26. PRILOSEC [Concomitant]
     Indication: REFLUX GASTRITIS

REACTIONS (5)
  - ARTHROPATHY [None]
  - FALL [None]
  - PAIN [None]
  - PNEUMONIA [None]
  - DEPRESSION [None]
